FAERS Safety Report 11882422 (Version 11)
Quarter: 2016Q4

REPORT INFORMATION
  Report Type: Report from Study
  Country: US (occurrence: US)
  Receive Date: 20151231
  Receipt Date: 20161216
  Transmission Date: 20170206
  Serious: Yes (Hospitalization, Other)
  Sender: FDA-Public Use
  Company Number: US-SA-2015SA142154

PATIENT
  Age: 47 Year
  Sex: Female

DRUGS (2)
  1. LEMTRADA [Suspect]
     Active Substance: ALEMTUZUMAB
     Indication: MULTIPLE SCLEROSIS
     Route: 041
     Dates: start: 20161026, end: 20161028
  2. LEMTRADA [Suspect]
     Active Substance: ALEMTUZUMAB
     Indication: MULTIPLE SCLEROSIS
     Route: 041
     Dates: start: 20150824, end: 20150828

REACTIONS (32)
  - Pneumonia [Not Recovered/Not Resolved]
  - Chest discomfort [Not Recovered/Not Resolved]
  - Sinus disorder [Not Recovered/Not Resolved]
  - Cystitis [Not Recovered/Not Resolved]
  - Dizziness [Not Recovered/Not Resolved]
  - Tuberculosis [Not Recovered/Not Resolved]
  - Gastrointestinal disorder [Not Recovered/Not Resolved]
  - Gait disturbance [Not Recovered/Not Resolved]
  - Dysuria [Not Recovered/Not Resolved]
  - Depressed mood [Unknown]
  - Hot flush [Not Recovered/Not Resolved]
  - Cerebral disorder [Unknown]
  - Nodule [Recovered/Resolved]
  - Nodule [Not Recovered/Not Resolved]
  - Sinusitis [Not Recovered/Not Resolved]
  - Erythema [Not Recovered/Not Resolved]
  - Cough [Not Recovered/Not Resolved]
  - Impulse-control disorder [Not Recovered/Not Resolved]
  - Hypokinesia [Not Recovered/Not Resolved]
  - Skin discolouration [Unknown]
  - Urinary incontinence [Unknown]
  - Fatigue [Not Recovered/Not Resolved]
  - Upper respiratory tract infection [Not Recovered/Not Resolved]
  - Dyspnoea [Not Recovered/Not Resolved]
  - Staphylococcal infection [Unknown]
  - Urinary tract infection staphylococcal [Unknown]
  - Hemiplegia [Not Recovered/Not Resolved]
  - Proteinuria [Unknown]
  - Oropharyngeal pain [Not Recovered/Not Resolved]
  - Feeling hot [Unknown]
  - Asthenia [Not Recovered/Not Resolved]
  - Nasopharyngitis [Not Recovered/Not Resolved]

NARRATIVE: CASE EVENT DATE: 2015
